FAERS Safety Report 15231781 (Version 3)
Quarter: 2019Q3

REPORT INFORMATION
  Report Type: Spontaneous
  Country: JP (occurrence: JP)
  Receive Date: 20180802
  Receipt Date: 20190725
  Transmission Date: 20191004
  Serious: Yes (Life-Threatening, Hospitalization)
  Sender: FDA-Public Use
  Company Number: PHJP2018JP014511

PATIENT
  Age: 37 Year
  Sex: Male

DRUGS (10)
  1. PERICIAZINE [Suspect]
     Active Substance: PERICIAZINE
     Indication: PRODUCT USED FOR UNKNOWN INDICATION
     Dosage: 25 MG, QD
     Route: 048
  2. TEGRETOL [Suspect]
     Active Substance: CARBAMAZEPINE
     Indication: EPILEPSY
     Dosage: 600 MG, QD
     Route: 048
  3. HALOPERIDOL. [Suspect]
     Active Substance: HALOPERIDOL
     Dosage: UNK, ONCE/SINGLE
     Route: 048
  4. HALOPERIDOL. [Suspect]
     Active Substance: HALOPERIDOL
     Indication: PRODUCT USED FOR UNKNOWN INDICATION
     Dosage: 6 MG, QD
     Route: 048
  5. PROMETHAZINE HYDROCHLORIDE. [Suspect]
     Active Substance: PROMETHAZINE HYDROCHLORIDE
     Indication: PRODUCT USED FOR UNKNOWN INDICATION
     Dosage: 25 MG, QD
     Route: 048
  6. PROMETHAZINE HYDROCHLORIDE. [Suspect]
     Active Substance: PROMETHAZINE HYDROCHLORIDE
     Dosage: UNK UNK, ONCE/SINGLE
     Route: 048
  7. PERICIAZINE [Suspect]
     Active Substance: PERICIAZINE
     Dosage: UNK UNK, ONCE/SINGLE
     Route: 048
  8. LEVOMEPROMAZINE [Suspect]
     Active Substance: LEVOMEPROMAZINE
     Dosage: UNK, ONCE/SINGLE
     Route: 048
  9. PHENYTOIN. [Suspect]
     Active Substance: PHENYTOIN
     Indication: EPILEPSY
     Dosage: 200 MG, QD
     Route: 048
  10. LEVOMEPROMAZINE [Suspect]
     Active Substance: LEVOMEPROMAZINE
     Indication: PRODUCT USED FOR UNKNOWN INDICATION
     Dosage: 50 MG, QD
     Route: 048

REACTIONS (8)
  - Pneumonia aspiration [Unknown]
  - Overdose [Recovering/Resolving]
  - Septic shock [Unknown]
  - Coma [Recovering/Resolving]
  - Toxicity to various agents [Recovering/Resolving]
  - Seizure [Recovering/Resolving]
  - Cardiotoxicity [Recovering/Resolving]
  - Altered state of consciousness [Recovering/Resolving]
